FAERS Safety Report 12414270 (Version 1)
Quarter: 2016Q2

REPORT INFORMATION
  Report Type: Spontaneous
  Country: US (occurrence: US)
  Receive Date: 20160528
  Receipt Date: 20160528
  Transmission Date: 20160815
  Serious: Yes (Other)
  Sender: FDA-Public Use
  Company Number: US-AMGEN-USASP2016065637

PATIENT
  Age: 14 Year
  Sex: Male

DRUGS (1)
  1. XGEVA [Suspect]
     Active Substance: DENOSUMAB
     Indication: BONE GIANT CELL TUMOUR
     Dosage: 120 MG, EVERY 28 DAYS
     Route: 058

REACTIONS (3)
  - Retinal detachment [Unknown]
  - Bone formation increased [Not Recovered/Not Resolved]
  - Retinopathy proliferative [Unknown]
